FAERS Safety Report 20834324 (Version 2)
Quarter: 2022Q2

REPORT INFORMATION
  Report Type: Spontaneous
  Country: US (occurrence: US)
  Receive Date: 20220516
  Receipt Date: 20220520
  Transmission Date: 20220721
  Serious: Yes (Hospitalization, Other)
  Sender: FDA-Public Use
  Company Number: US-PFIZER INC-202200673226

PATIENT
  Age: 10 Year
  Sex: Female
  Weight: 49.4 kg

DRUGS (2)
  1. ETHOSUXIMIDE [Suspect]
     Active Substance: ETHOSUXIMIDE
     Indication: Petit mal epilepsy
     Dosage: 250 MG, 1X/DAY
  2. AMOXICILLIN [Suspect]
     Active Substance: AMOXICILLIN
     Indication: Mouth swelling
     Dosage: UNK

REACTIONS (3)
  - Lupus-like syndrome [Unknown]
  - Tubulointerstitial nephritis [Unknown]
  - Nephrotic syndrome [Unknown]
